FAERS Safety Report 7255991-0 (Version None)
Quarter: 2011Q1

REPORT INFORMATION
  Report Type: 
  Country: None (occurrence: None)
  Receive Date: 20110129
  Receipt Date: 20100519
  Transmission Date: 20110831
  Serious: Yes (Other)
  Sender: FDA-Public Use
  Company Number: US-ABBOTT-10P-163-0646113-00

PATIENT
  Sex: Female
  Weight: 61.29 kg

DRUGS (2)
  1. UNKNOWN VITAMINS [Concomitant]
     Indication: PRODUCT USED FOR UNKNOWN INDICATION
  2. HUMIRA [Suspect]
     Indication: PSORIATIC ARTHROPATHY
     Route: 058
     Dates: start: 20090101

REACTIONS (6)
  - HANGOVER [None]
  - FATIGUE [None]
  - NAUSEA [None]
  - BASAL CELL CARCINOMA [None]
  - HEADACHE [None]
  - DIARRHOEA [None]
